FAERS Safety Report 8170409 (Version 5)
Quarter: 2013Q4

REPORT INFORMATION
  Report Type: Report from Study
  Country: JP (occurrence: JP)
  Receive Date: 20111006
  Receipt Date: 20131028
  Transmission Date: 20140711
  Serious: Yes (Hospitalization, Other)
  Sender: FDA-Public Use
  Company Number: JP-ASTELLAS-2011JP006873

PATIENT
  Age: 28 Year
  Sex: Female
  Weight: 50.5 kg

DRUGS (42)
  1. TACROLIMUS CAPSULES [Suspect]
     Indication: LUPUS NEPHRITIS
     Dosage: 2.5 MG, UNKNOWN/D
     Route: 048
     Dates: start: 20101027
  2. TACROLIMUS CAPSULES [Suspect]
     Dosage: 2 MG, UNKNOWN/D
     Route: 048
     Dates: start: 20090903, end: 20101026
  3. RISPERDAL [Suspect]
     Indication: SCHIZOPHRENIA
     Dosage: UNK
     Route: 048
     Dates: end: 20091202
  4. RISPERDAL [Suspect]
     Dosage: 1 MG, UNKNOWN/D
     Route: 048
     Dates: start: 20100724
  5. RISPERDAL [Suspect]
     Dosage: 1.5 MG, UNKNOWN/D
     Route: 048
     Dates: end: 20120125
  6. RISPERDAL [Suspect]
     Dosage: 1 MG, UNKNOWN/D
     Route: 048
     Dates: start: 20120126, end: 20120321
  7. RISPERDAL [Suspect]
     Dosage: 0.5 MG, UNKNOWN/D
     Route: 048
     Dates: start: 20120322
  8. PREDNISOLONE [Concomitant]
     Indication: LUPUS NEPHRITIS
     Dosage: 11 MG, UNKNOWN/D
     Route: 048
     Dates: end: 20090902
  9. PREDNISOLONE [Concomitant]
     Dosage: 10 MG, UNKNOWN/D
     Route: 048
     Dates: start: 20090903, end: 20090930
  10. PREDNISOLONE [Concomitant]
     Dosage: 9 MG, UNKNOWN/D
     Route: 048
     Dates: start: 20091001, end: 20091202
  11. PREDNISOLONE [Concomitant]
     Dosage: 8 MG, UNKNOWN/D
     Route: 048
     Dates: start: 20091203, end: 20100907
  12. PREDNISOLONE [Concomitant]
     Dosage: 15 MG, UNKNOWN/D
     Route: 048
     Dates: start: 20100908, end: 20100915
  13. PREDNISOLONE [Concomitant]
     Dosage: 12.5 MG, UNKNOWN/D
     Route: 048
     Dates: start: 20100916, end: 20100921
  14. PREDNISOLONE [Concomitant]
     Dosage: 12 MG, UNKNOWN/D
     Route: 048
     Dates: start: 20100922, end: 20100925
  15. PREDNISOLONE [Concomitant]
     Dosage: 11 MG, UNKNOWN/D
     Route: 048
     Dates: start: 20100926, end: 20100929
  16. PREDNISOLONE [Concomitant]
     Dosage: 10 MG, UNKNOWN/D
     Route: 048
     Dates: start: 20100930, end: 20101007
  17. PREDNISOLONE [Concomitant]
     Dosage: 15 MG, UNKNOWN/D
     Route: 048
     Dates: start: 20101008, end: 20101013
  18. PREDNISOLONE [Concomitant]
     Dosage: 14 MG, UNKNOWN/D
     Route: 048
     Dates: start: 20101014, end: 20110309
  19. PREDNISOLONE [Concomitant]
     Dosage: 13 MG, UNKNOWN/D
     Route: 048
     Dates: start: 20110310, end: 20110406
  20. PREDNISOLONE [Concomitant]
     Dosage: 12 MG, UNKNOWN/D
     Route: 048
     Dates: start: 20110407, end: 20110615
  21. PREDNISOLONE [Concomitant]
     Dosage: 11 MG, UNKNOWN/D
     Route: 048
     Dates: start: 20110616, end: 20110907
  22. PREDNISOLONE [Concomitant]
     Dosage: 10 MG, UNKNOWN/D
     Route: 048
     Dates: start: 20110908, end: 20120516
  23. PREDNISOLONE [Concomitant]
     Dosage: 9 MG, UNKNOWN/D
     Route: 048
     Dates: start: 20120517, end: 20130306
  24. PREDNISOLONE [Concomitant]
     Dosage: 8 MG, UNKNOWN/D
     Route: 048
     Dates: start: 20130307, end: 20130821
  25. PREDNISOLONE [Concomitant]
     Dosage: 7 MG, UNKNOWN/D
     Route: 048
     Dates: start: 20130822
  26. BAKTAR [Concomitant]
     Dosage: 0.5 DF, UNKNOWN/D
     Route: 048
     Dates: end: 20110522
  27. BAYASPIRIN [Concomitant]
     Indication: LUPUS NEPHRITIS
     Dosage: 100 MG, UID/QD
     Route: 048
  28. ARTIST [Concomitant]
     Dosage: 2.5 MG, UNKNOWN/D
     Route: 048
     Dates: end: 20101216
  29. MUCOSTA [Concomitant]
     Dosage: UNK
     Route: 048
     Dates: end: 20100317
  30. ADALAT CR [Concomitant]
     Indication: HYPERTENSION
     Dosage: 20 MG, UNKNOWN/D
     Route: 048
  31. ACTONEL [Concomitant]
     Indication: PROPHYLAXIS
     Dosage: 17.5 MG, WEEKLY
     Route: 048
     Dates: end: 20100801
  32. OMEPRAL [Concomitant]
     Dosage: 10 MG, UNKNOWN/D
     Route: 048
  33. LOXONIN [Concomitant]
     Indication: HEADACHE
     Dosage: 60 MG, UNKNOWN/D
     Route: 048
     Dates: start: 20100527, end: 20100707
  34. DEPAS [Concomitant]
     Indication: INSOMNIA
     Dosage: 3 MG, UNKNOWN/D
     Route: 048
     Dates: start: 20100724, end: 20101001
  35. SEROQUEL [Concomitant]
     Indication: SCHIZOPHRENIA
     Dosage: 50 MG, UNKNOWN/D
     Route: 048
     Dates: start: 20100724, end: 20100906
  36. LONASEN [Concomitant]
     Indication: SCHIZOPHRENIA
     Dosage: 4 MG, UNKNOWN/D
     Route: 048
     Dates: start: 20100723, end: 20100819
  37. ZYLORIC [Concomitant]
     Indication: HYPERURICAEMIA
     Dosage: 50 MG, UNKNOWN/D
     Route: 048
     Dates: start: 20100904
  38. PURSENNID                          /00571902/ [Concomitant]
     Indication: CONSTIPATION
     Dosage: 24 MG, UNKNOWN/D
     Route: 048
     Dates: start: 20100907
  39. LENDORMIN [Concomitant]
     Indication: SCHIZOPHRENIA
     Dosage: 0.25 MG, UID/QD
     Route: 048
     Dates: start: 20100908, end: 20101007
  40. LIVALO [Concomitant]
     Indication: HYPERCHOLESTEROLAEMIA
     Dosage: 1 MG, UNKNOWN/D
     Route: 048
     Dates: start: 20101216, end: 20110714
  41. LIPITOR [Concomitant]
     Indication: DYSLIPIDAEMIA
     Dosage: 5 MG, UNKNOWN/D
     Route: 048
     Dates: start: 20120517
  42. LIPITOR [Concomitant]
     Indication: PROPHYLAXIS

REACTIONS (7)
  - Adenoma benign [Recovering/Resolving]
  - Headache [Recovering/Resolving]
  - Schizophrenia [Recovering/Resolving]
  - Pruritus [Recovering/Resolving]
  - Dyslipidaemia [Recovering/Resolving]
  - Chalazion [Recovering/Resolving]
  - Adenoma benign [Recovering/Resolving]
